FAERS Safety Report 14691212 (Version 4)
Quarter: 2019Q2

REPORT INFORMATION
  Report Type: Report from Study
  Country: US (occurrence: US)
  Receive Date: 20180328
  Receipt Date: 20190628
  Transmission Date: 20190711
  Serious: Yes (Other)
  Sender: FDA-Public Use
  Company Number: US-TAKEDA-2018TUS007495

PATIENT
  Sex: Female

DRUGS (1)
  1. PONATINIB [Suspect]
     Active Substance: PONATINIB
     Indication: CHRONIC MYELOID LEUKAEMIA
     Dosage: 15 MILLIGRAM, QD
     Route: 048
     Dates: start: 20160421

REACTIONS (20)
  - Lymphocyte count increased [Unknown]
  - Red blood cell count decreased [Unknown]
  - Mean cell volume increased [Unknown]
  - Mean cell haemoglobin increased [Unknown]
  - Blood glucose increased [Unknown]
  - Product dose omission [Unknown]
  - Liver function test increased [Unknown]
  - Rash [Unknown]
  - Pyrexia [Recovered/Resolved]
  - Mean platelet volume decreased [Unknown]
  - Blood creatinine decreased [Unknown]
  - Red cell distribution width decreased [Unknown]
  - Blood chloride increased [Unknown]
  - Haemoglobin decreased [Unknown]
  - Cough [Unknown]
  - Cholelithiasis [Unknown]
  - Blood immunoglobulin G decreased [Unknown]
  - Blood urea increased [Unknown]
  - Haematocrit decreased [Unknown]
  - Blood 25-hydroxycholecalciferol [Unknown]
